FAERS Safety Report 17070208 (Version 1)
Quarter: 2019Q4

REPORT INFORMATION
  Report Type: Spontaneous
  Country: GB (occurrence: GB)
  Receive Date: 20191125
  Receipt Date: 20191125
  Transmission Date: 20200122
  Serious: Yes (Hospitalization)
  Sender: FDA-Public Use
  Company Number: GB-TEVA-2019-GB-1140639

PATIENT
  Age: 61 Year
  Sex: Male

DRUGS (9)
  1. PERINDOPRIL TERT-BUTYLAMINE [Concomitant]
     Active Substance: PERINDOPRIL ERBUMINE
     Dosage: EACH MORNING BEFORE FOOD STOPPED. 8  MG
  2. NOVOMIX [Concomitant]
     Active Substance: INSULIN ASPART
     Dosage: MORNING AND TEA-TIME. 80 IU
  3. CARBIMAZOLE [Concomitant]
     Active Substance: CARBIMAZOLE
     Dosage: 20 MG
  4. AMLODIPINE [Concomitant]
     Active Substance: AMLODIPINE BESYLATE
     Dosage: 10 MG
  5. METFORMIN [Concomitant]
     Active Substance: METFORMIN HYDROCHLORIDE
     Dosage: BREAKFAST AND EVENING MEAL. 2 GRAM
  6. DOXAZOSIN [Concomitant]
     Active Substance: DOXAZOSIN MESYLATE
     Dosage: IN THE MORNING. 1  MG
  7. ATORVASTATIN [Concomitant]
     Active Substance: ATORVASTATIN
     Dosage: 40 MG
  8. CLOPIDOGREL [Concomitant]
     Active Substance: CLOPIDOGREL BISULFATE
     Dosage: 75 MG
  9. ATENOLOL. [Suspect]
     Active Substance: ATENOLOL
     Dosage: 50 MG

REACTIONS (2)
  - Acute kidney injury [Unknown]
  - Hyperkalaemia [Recovered/Resolved]
